FAERS Safety Report 6877047-9 (Version None)
Quarter: 2010Q3

REPORT INFORMATION
  Report Type: 
  Country: None (occurrence: None)
  Receive Date: 20100727
  Receipt Date: 20100727
  Transmission Date: 20110219
  Serious: Yes (Death, Hospitalization)
  Sender: FDA-Public Use
  Company Number: None

PATIENT
  Age: 73 Year
  Sex: Female
  Weight: 90 kg

DRUGS (1)
  1. BAYCOL (CERIVASTATIN) [Suspect]
     Indication: HYPERCHOLESTEROLAEMIA
     Dosage: ORAL 047
     Route: 048

REACTIONS (4)
  - COAGULOPATHY [None]
  - JAUNDICE [None]
  - MENTAL STATUS CHANGES [None]
  - MULTI-ORGAN FAILURE [None]
